FAERS Safety Report 4502077-1 (Version None)
Quarter: 2004Q4

REPORT INFORMATION
  Report Type: 
  Country: None (occurrence: None)
  Receive Date: 20041116
  Receipt Date: 20040803
  Transmission Date: 20050328
  Serious: Yes (Other)
  Sender: FDA-Public Use
  Company Number: CA-MERCK-0408CAN00015

PATIENT
  Age: 49 Year
  Sex: Male

DRUGS (13)
  1. ASCORBIC ACID [Concomitant]
     Route: 065
  2. GLUCOSAMINE [Concomitant]
     Route: 065
  3. VIOXX [Suspect]
     Route: 048
     Dates: start: 20031201
  4. ROSUVASTATIN CALCIUM [Suspect]
     Route: 048
     Dates: start: 20030301, end: 20040124
  5. ROSUVASTATIN CALCIUM [Suspect]
     Route: 048
     Dates: start: 20040124
  6. NIACIN [Concomitant]
     Route: 065
  7. ASPIRIN [Concomitant]
     Route: 065
  8. CLOPIDOGREL BISULFATE [Concomitant]
     Route: 065
  9. ZETIA [Suspect]
     Route: 048
     Dates: start: 20031201
  10. ATENOLOL [Concomitant]
     Route: 065
  11. QUINAPRIL HYDROCHLORIDE [Concomitant]
     Route: 065
  12. ALLOPURINOL [Concomitant]
     Route: 065
  13. FOLIC ACID [Concomitant]
     Route: 065

REACTIONS (4)
  - ALANINE AMINOTRANSFERASE INCREASED [None]
  - ASPARTATE AMINOTRANSFERASE INCREASED [None]
  - BLOOD CREATINE PHOSPHOKINASE INCREASED [None]
  - DRUG INTERACTION [None]
